FAERS Safety Report 4690629-8 (Version None)
Quarter: 2005Q2

REPORT INFORMATION
  Report Type: 
  Country: None (occurrence: None)
  Receive Date: 20050615
  Receipt Date: 20050228
  Transmission Date: 20051028
  Serious: Yes (Life-Threatening, Hospitalization)
  Sender: FDA-Public Use
  Company Number: JPKYO-S-20050002

PATIENT
  Age: 79 Year
  Sex: Male

DRUGS (8)
  1. NAVELBINE [Suspect]
     Indication: LUNG SQUAMOUS CELL CARCINOMA STAGE UNSPECIFIED
     Route: 042
     Dates: start: 20040901
  2. GEMZAR [Suspect]
     Indication: LUNG SQUAMOUS CELL CARCINOMA STAGE UNSPECIFIED
     Route: 042
     Dates: start: 20040901
  3. NORVASC [Concomitant]
     Dates: end: 20040111
  4. BLOPRESS [Concomitant]
     Dates: end: 20040111
  5. OMEPRAL [Concomitant]
     Dates: end: 20040111
  6. NAPROXEN [Concomitant]
     Dates: end: 20040111
  7. NEOMINOPHAGEN [Concomitant]
  8. PL [Concomitant]

REACTIONS (4)
  - DYSPNOEA [None]
  - HYPOXIA [None]
  - INTERSTITIAL LUNG DISEASE [None]
  - PYREXIA [None]
